FAERS Safety Report 7068449-9 (Version None)
Quarter: 2010Q4

REPORT INFORMATION
  Report Type: 
  Country: None (occurrence: None)
  Receive Date: 20101028
  Receipt Date: 20101019
  Transmission Date: 20110411
  Serious: Yes (Hospitalization, Other)
  Sender: FDA-Public Use
  Company Number: US-GENZYME-CLOF-1001201

PATIENT
  Sex: Male
  Weight: 114.9 kg

DRUGS (3)
  1. CLOLAR [Suspect]
     Indication: ACUTE MYELOID LEUKAEMIA
     Dosage: 52 MG/M2, QDX5
     Route: 042
     Dates: start: 20100830, end: 20100903
  2. CYTARABINE [Suspect]
     Indication: ACUTE MYELOID LEUKAEMIA
     Dosage: 1000 MG/M2, QDX5
     Route: 042
     Dates: start: 20100830, end: 20100903
  3. CYTARABINE [Concomitant]
     Dosage: 70 MG, ONCE
     Route: 037
     Dates: start: 20100825, end: 20100825

REACTIONS (11)
  - ALANINE AMINOTRANSFERASE INCREASED [None]
  - ASPARTATE AMINOTRANSFERASE INCREASED [None]
  - BACTERAEMIA [None]
  - BLOOD AMYLASE INCREASED [None]
  - CAPILLARY LEAK SYNDROME [None]
  - FEBRILE NEUTROPENIA [None]
  - HYPOCALCAEMIA [None]
  - HYPOKALAEMIA [None]
  - HYPOPHOSPHATAEMIA [None]
  - LIPASE INCREASED [None]
  - RESPIRATORY DISORDER [None]
